FAERS Safety Report 11682997 (Version 1)
Quarter: 2015Q4

REPORT INFORMATION
  Report Type: Spontaneous
  Country: AU (occurrence: AU)
  Receive Date: 20151029
  Receipt Date: 20151029
  Transmission Date: 20160304
  Serious: Yes (Hospitalization)
  Sender: FDA-Public Use
  Company Number: AU-FRESENIUS KABI-FK201505458

PATIENT
  Age: 89 Year
  Sex: Female
  Weight: 75 kg

DRUGS (6)
  1. OMEPRAZOLE. [Concomitant]
     Active Substance: OMEPRAZOLE
  2. MIRTAZEPINE [Concomitant]
     Active Substance: MIRTAZAPINE
     Indication: DEPRESSION
  3. MOXONIDINE [Concomitant]
     Active Substance: MOXONIDINE
  4. PROPOFOL FRESENIUS (NOT SPECIFIED) [Suspect]
     Active Substance: PROPOFOL
     Indication: ELECTROCONVULSIVE THERAPY
     Route: 042
     Dates: start: 20150907, end: 20150921
  5. PREDNISOLONE. [Concomitant]
     Active Substance: PREDNISOLONE
  6. LITHIUM. [Concomitant]
     Active Substance: LITHIUM

REACTIONS (2)
  - Peroneal nerve palsy [Recovered/Resolved]
  - Off label use [Recovered/Resolved]

NARRATIVE: CASE EVENT DATE: 20150910
